FAERS Safety Report 9780161 (Version 2)
Quarter: 2014Q1

REPORT INFORMATION
  Report Type: Report from Study
  Country: US (occurrence: US)
  Receive Date: 20131223
  Receipt Date: 20140102
  Transmission Date: 20141002
  Serious: Yes (Other)
  Sender: FDA-Public Use
  Company Number: US-ABBVIE-13P-163-1180831-00

PATIENT
  Age: 67 Year
  Sex: Female

DRUGS (5)
  1. HUMIRA [Suspect]
     Indication: PSORIATIC ARTHROPATHY
     Dates: start: 2009
  2. MOBIC [Concomitant]
     Indication: INFLAMMATION
  3. MOBIC [Concomitant]
     Indication: ARTHRALGIA
  4. ARAVA [Concomitant]
     Indication: INFLAMMATION
  5. ARAVA [Concomitant]
     Indication: ARTHRALGIA

REACTIONS (6)
  - Rheumatoid arthritis [Not Recovered/Not Resolved]
  - Skin irritation [Not Recovered/Not Resolved]
  - Rash [Not Recovered/Not Resolved]
  - Burning sensation [Not Recovered/Not Resolved]
  - Facial pain [Not Recovered/Not Resolved]
  - Head injury [Not Recovered/Not Resolved]
